FAERS Safety Report 5402893-8 (Version None)
Quarter: 2007Q3

REPORT INFORMATION
  Report Type: 
  Country: None (occurrence: None)
  Receive Date: 20070801
  Receipt Date: 20070726
  Transmission Date: 20080115
  Serious: Yes (Hospitalization)
  Sender: FDA-Public Use
  Company Number: SE-ROCHE-508795

PATIENT
  Age: 64 Year
  Sex: Female

DRUGS (8)
  1. TICLID [Suspect]
     Indication: PERCUTANEOUS CORONARY INTERVENTION
     Dosage: TOTAL DAILY DOSE UNKNOWN.
     Route: 048
     Dates: start: 20070513, end: 20070614
  2. CORDARONE [Concomitant]
  3. SIMVASTATIN [Concomitant]
  4. TROMBYL [Concomitant]
     Route: 048
  5. BISOPROLOL FUMARATE [Concomitant]
     Route: 048
  6. FELODIPINE [Concomitant]
     Route: 048
  7. LEVAXIN [Concomitant]
     Route: 048
  8. OMEPRAZOLE [Concomitant]
     Route: 048

REACTIONS (2)
  - DIARRHOEA [None]
  - HYPOKALAEMIA [None]
